FAERS Safety Report 8508235-3 (Version None)
Quarter: 2012Q3

REPORT INFORMATION
  Report Type: 
  Country: None (occurrence: None)
  Receive Date: 20120713
  Receipt Date: 20120708
  Transmission Date: 20120928
  Serious: Yes (Death, Life-Threatening, Hospitalization, Disabling, Other)
  Sender: FDA-Public Use
  Company Number: US-CELGENEUS-163-21880-11070360

PATIENT
  Age: 66 Year
  Sex: Female
  Weight: 90.8 kg

DRUGS (21)
  1. DEXAMETHASONE [Suspect]
     Indication: MULTIPLE MYELOMA
     Dosage: 2.8571 MILLIGRAM
     Route: 048
     Dates: start: 20101218, end: 20110602
  2. BETASERON [Concomitant]
     Route: 065
  3. LOTREL [Concomitant]
     Route: 065
  4. COREG [Concomitant]
     Route: 065
  5. DOXEPIN [Concomitant]
     Route: 065
  6. REVLIMID [Suspect]
     Indication: MULTIPLE MYELOMA
     Dosage: 25 MILLIGRAM
     Route: 048
     Dates: start: 20101220, end: 20110609
  7. VITAMIN D [Concomitant]
     Route: 065
  8. WARFARIN SODIUM [Concomitant]
     Route: 065
  9. VELCADE [Suspect]
     Route: 041
     Dates: end: 20120410
  10. PREDNISONE [Suspect]
     Indication: MULTIPLE MYELOMA
     Route: 041
  11. PRAVASTATIN [Concomitant]
     Route: 065
  12. DOXIL [Concomitant]
     Route: 041
     Dates: start: 20110831, end: 20111227
  13. ACYCLOVIR [Concomitant]
     Route: 065
  14. ALLOPURINOL [Concomitant]
     Route: 065
  15. VELCADE [Suspect]
     Indication: MULTIPLE MYELOMA
     Dosage: .2714 MILLIGRAM
     Route: 041
     Dates: start: 20101212, end: 20110602
  16. DEXAMETHASONE [Suspect]
     Route: 041
     Dates: end: 20120410
  17. HEOCYTE [Concomitant]
     Route: 065
  18. TRICORE [Concomitant]
     Route: 065
  19. ASPIRIN [Concomitant]
     Route: 065
  20. REVLIMID [Suspect]
     Route: 048
     Dates: end: 20120501
  21. METFORMIN HYDROCHLORIDE [Concomitant]
     Route: 065

REACTIONS (20)
  - ATRIAL FIBRILLATION [None]
  - ENCEPHALOPATHY [None]
  - CARDIAC FAILURE CONGESTIVE [None]
  - ASTHENIA [None]
  - PNEUMONIA [None]
  - RENAL TUBULAR NECROSIS [None]
  - URINARY TRACT INFECTION ENTEROCOCCAL [None]
  - DEATH [None]
  - RESPIRATORY FAILURE [None]
  - RENAL FAILURE [None]
  - CLOSTRIDIAL INFECTION [None]
  - ACUTE MYOCARDIAL INFARCTION [None]
  - HYPOGAMMAGLOBULINAEMIA [None]
  - DYSPNOEA [None]
  - PULMONARY HYPERTENSION [None]
  - IMMUNOSUPPRESSION [None]
  - FEBRILE NEUTROPENIA [None]
  - GASTROINTESTINAL HAEMORRHAGE [None]
  - MALNUTRITION [None]
  - RENAL FAILURE ACUTE [None]
